FAERS Safety Report 8530012-8 (Version None)
Quarter: 2012Q3

REPORT INFORMATION
  Report Type: 
  Country: None (occurrence: None)
  Receive Date: 20120723
  Receipt Date: 20120716
  Transmission Date: 20120928
  Serious: Yes (Other)
  Sender: FDA-Public Use
  Company Number: PHEH2007US016485

PATIENT
  Sex: Male
  Weight: 74.376 kg

DRUGS (46)
  1. AREDIA [Suspect]
     Indication: OSTEOPOROSIS
     Dosage: 120 MG, QMO
     Route: 042
     Dates: start: 19990101, end: 20060526
  2. CARDURA [Concomitant]
     Dosage: 4 MG, QD
  3. FOSAMAX [Concomitant]
  4. ZOCOR [Concomitant]
  5. CYMBALTA [Concomitant]
  6. AGGRENOX [Concomitant]
  7. CELEBREX [Concomitant]
  8. CARBOPLATIN [Concomitant]
  9. ZOLOFT [Concomitant]
     Route: 048
  10. DITROPAN                                /USA/ [Concomitant]
  11. LUPRON [Suspect]
     Indication: PROSTATE CANCER
     Dosage: 7.5 MG,
     Dates: start: 19970422
  12. LIPITOR [Concomitant]
     Dosage: 10 MG, QD
  13. CLINDAMYCIN [Concomitant]
     Dosage: 300 MG,
  14. KETOCONAZOLE [Concomitant]
  15. LOVENOX [Concomitant]
  16. ANTIINFLAMMATORY/ANTIRHEUMATIC NON-STEROIDS [Concomitant]
     Dates: start: 19990101, end: 20020101
  17. FLUTAMIDE [Concomitant]
     Indication: PROSTATE CANCER
  18. AMITIZA [Concomitant]
  19. PERCOCET [Concomitant]
  20. VITAMIN B6 [Concomitant]
  21. LYRICA [Concomitant]
     Dosage: 50 MG, 1,  3 TIMES DAILY
  22. PREDNISONE [Concomitant]
  23. LORAZEPAM [Concomitant]
  24. FENTANYL CITRATE [Concomitant]
  25. ZOMETA [Suspect]
     Indication: OSTEOPOROSIS
     Dosage: 4 MG, QW3
     Dates: start: 20011220
  26. TAXOTERE [Concomitant]
  27. POTASSIUM CHLORIDE [Concomitant]
  28. THALIDOMIDE [Concomitant]
     Indication: PROSTATE CANCER
     Dosage: 50 MG, QD
     Dates: start: 20001218, end: 20010201
  29. VITAMIN D [Concomitant]
  30. LEUKINE [Concomitant]
  31. VIAGRA [Concomitant]
  32. CITRACAL [Concomitant]
  33. ASPIRIN [Concomitant]
  34. VIOXX [Concomitant]
  35. NEURONTIN [Concomitant]
     Dosage: 100 MG,
  36. REVLIMID [Concomitant]
     Dosage: 5 MG,
  37. ZETIA [Concomitant]
     Indication: HYPERCHOLESTEROLAEMIA
  38. TAXOL [Concomitant]
  39. PROSCAR [Concomitant]
     Indication: PROSTATE CANCER
     Dosage: 5 MG, QD
  40. DECADRON [Concomitant]
     Dosage: 20 MG, MONTHLY
  41. CHEMOTHERAPEUTICS NOS [Concomitant]
  42. HYDROCODONE [Concomitant]
  43. TRELSTAR LA [Concomitant]
  44. NEULASTA [Concomitant]
  45. NEXIUM [Concomitant]
  46. DIGOXIN [Concomitant]
     Indication: ATRIAL FIBRILLATION

REACTIONS (100)
  - CONTUSION [None]
  - ANAEMIA [None]
  - NEPHROLITHIASIS [None]
  - CYST [None]
  - PULMONARY GRANULOMA [None]
  - RENAL CYST [None]
  - LUNG DISORDER [None]
  - DIZZINESS [None]
  - NOCTURIA [None]
  - DEEP VEIN THROMBOSIS [None]
  - LOSS OF CONSCIOUSNESS [None]
  - BONE LESION [None]
  - CHOLELITHIASIS [None]
  - RENAL FAILURE [None]
  - CYSTITIS [None]
  - GASTRIC DISORDER [None]
  - CONSTIPATION [None]
  - UPPER-AIRWAY COUGH SYNDROME [None]
  - EPISTAXIS [None]
  - OCCULT BLOOD POSITIVE [None]
  - MANIA [None]
  - ABDOMINAL PAIN UPPER [None]
  - ORAL DISCHARGE [None]
  - JAW DISORDER [None]
  - SEASONAL ALLERGY [None]
  - BENIGN PROSTATIC HYPERPLASIA [None]
  - GASTRODUODENITIS [None]
  - GINGIVAL DISORDER [None]
  - INFECTION [None]
  - HYPERPARATHYROIDISM [None]
  - PARATHYROID TUMOUR BENIGN [None]
  - DIVERTICULUM [None]
  - RETINAL ISCHAEMIA [None]
  - GYNAECOMASTIA [None]
  - BACTERIAL INFECTION [None]
  - CHRONIC SINUSITIS [None]
  - DEPRESSION [None]
  - SLEEP APNOEA SYNDROME [None]
  - COLONIC POLYP [None]
  - BEDRIDDEN [None]
  - PAIN IN EXTREMITY [None]
  - BACK PAIN [None]
  - SWELLING FACE [None]
  - HYPOAESTHESIA ORAL [None]
  - RECTAL HAEMORRHAGE [None]
  - TOOTH ABSCESS [None]
  - URINE OUTPUT [None]
  - OBSTRUCTIVE UROPATHY [None]
  - COMPRESSION FRACTURE [None]
  - NEUTROPENIA [None]
  - BLINDNESS [None]
  - THYROID CANCER [None]
  - HAEMOPTYSIS [None]
  - CHOLECYSTITIS [None]
  - JAW FRACTURE [None]
  - CEREBROVASCULAR ACCIDENT [None]
  - ABDOMINAL HERNIA [None]
  - RENAL FAILURE CHRONIC [None]
  - ATRIAL FIBRILLATION [None]
  - BONE SCAN ABNORMAL [None]
  - GOITRE [None]
  - IRRITABLE BOWEL SYNDROME [None]
  - FALL [None]
  - NIGHT SWEATS [None]
  - SPINAL OSTEOARTHRITIS [None]
  - DRUG HYPERSENSITIVITY [None]
  - PAIN [None]
  - HAEMATURIA [None]
  - ERECTILE DYSFUNCTION [None]
  - ARTERIOSCLEROSIS [None]
  - CEREBELLAR INFARCTION [None]
  - BONE DISORDER [None]
  - OSTEOMALACIA [None]
  - CHRONIC OBSTRUCTIVE PULMONARY DISEASE [None]
  - OROPHARYNGEAL PAIN [None]
  - HYPERTENSION [None]
  - NAUSEA [None]
  - HYPOTENSION [None]
  - DYSPEPSIA [None]
  - URINARY TRACT INFECTION [None]
  - ONYCHOMYCOSIS [None]
  - BLOOD CREATININE INCREASED [None]
  - OSTEOMYELITIS [None]
  - OSTEONECROSIS OF JAW [None]
  - BLOOD PARATHYROID HORMONE INCREASED [None]
  - BONE PAIN [None]
  - MYOCARDIAL INFARCTION [None]
  - HEADACHE [None]
  - MELANOCYTIC NAEVUS [None]
  - ABDOMINAL PAIN [None]
  - DYSURIA [None]
  - FISTULA [None]
  - HYPERCHOLESTEROLAEMIA [None]
  - OEDEMA [None]
  - SINUS BRADYCARDIA [None]
  - ANIMAL BITE [None]
  - RIB FRACTURE [None]
  - OSTEOPENIA [None]
  - WEIGHT DECREASED [None]
  - OSTEITIS [None]
